FAERS Safety Report 16396139 (Version 4)
Quarter: 2019Q4

REPORT INFORMATION
  Report Type: Spontaneous
  Country: JP (occurrence: JP)
  Receive Date: 20190605
  Receipt Date: 20191115
  Transmission Date: 20200122
  Serious: Yes (Other)
  Sender: FDA-Public Use
  Company Number: JP-009507513-1905JPN003649J

PATIENT
  Age: 69 Year
  Sex: Male
  Weight: 68 kg

DRUGS (13)
  1. AROTINOLOL HYDROCHLORIDE [Concomitant]
     Active Substance: AROTINOLOL HYDROCHLORIDE
     Indication: HYPERTENSION
     Dosage: 10 MILLIGRAM, BID
     Route: 048
     Dates: start: 20190404
  2. VALSARTAN. [Concomitant]
     Active Substance: VALSARTAN
     Indication: HYPERTENSION
     Dosage: 4 MILLIGRAM, QD
     Route: 048
     Dates: start: 20190404
  3. DENOTAS CHEWABLE COMBINATION TABLETS [Concomitant]
     Active Substance: CALCIUM CARBONATE\CHOLECALCIFEROL\MAGNESIUM CARBONATE
     Indication: ADVERSE DRUG REACTION
     Dosage: 2 DOSAGE FORM, QD
     Route: 048
     Dates: start: 20190416
  4. KEYTRUDA [Suspect]
     Active Substance: PEMBROLIZUMAB
     Indication: NON-SMALL CELL LUNG CANCER
     Dosage: 200 MILLIGRAM, EVERY 4 WEEKS
     Route: 041
     Dates: start: 20190404
  5. CARBOPLATIN. [Suspect]
     Active Substance: CARBOPLATIN
     Indication: NON-SMALL CELL LUNG CANCER
     Dosage: 380 MILLIGRAM, EVERY 4 WEEKS
     Route: 041
     Dates: start: 20190404
  6. EMEND [Concomitant]
     Active Substance: APREPITANT
     Indication: ADVERSE REACTION
     Dosage: 125 MILLIGRAM, EVERY 4 WEEKS
     Route: 048
     Dates: start: 20190404
  7. E KEPPRA [Concomitant]
     Active Substance: LEVETIRACETAM
     Indication: PROPHYLAXIS
     Dosage: 50 MILLIGRAM, BID
     Route: 048
     Dates: start: 20190418
  8. GRANISETRON [Concomitant]
     Active Substance: GRANISETRON
     Indication: ADVERSE REACTION
     Dosage: 300 MILLIGRAM, EVERY 4 WEEKS
     Route: 051
     Dates: start: 20190404
  9. PANVITAN [Concomitant]
     Active Substance: VITAMINS
     Indication: ADVERSE REACTION
     Dosage: 1 GRAM, QD
     Route: 048
     Dates: start: 20190401
  10. PEMETREXED DISODIUM [Suspect]
     Active Substance: PEMETREXED DISODIUM
     Indication: NON-SMALL CELL LUNG CANCER
     Dosage: 700 MILLIGRAM, EVERY 4 WEEKS
     Route: 041
     Dates: start: 20190404
  11. RANMARK [Concomitant]
     Active Substance: DENOSUMAB
     Indication: METASTASES TO BONE
     Dosage: 120 MILLIGRAM, EVERY 4 WEEKS
     Route: 058
     Dates: start: 20190416
  12. EMEND [Concomitant]
     Active Substance: APREPITANT
     Dosage: 80 MILLIGRAM
     Route: 048
     Dates: start: 20190405
  13. AMLODIPINE [Concomitant]
     Active Substance: AMLODIPINE BESYLATE
     Indication: HYPERTENSION
     Dosage: 5 GRAM, QD
     Route: 048
     Dates: start: 20190404

REACTIONS (2)
  - Pulmonary embolism [Recovering/Resolving]
  - Off label use [Unknown]

NARRATIVE: CASE EVENT DATE: 20190520
